FAERS Safety Report 20564636 (Version 1)
Quarter: 2022Q1

REPORT INFORMATION
  Report Type: Spontaneous
  Country: HR (occurrence: HR)
  Receive Date: 20220308
  Receipt Date: 20220308
  Transmission Date: 20220423
  Serious: Yes (Other)
  Sender: FDA-Public Use
  Company Number: None

PATIENT
  Age: 20 Year
  Sex: Male

DRUGS (2)
  1. CLOZAPINE [Suspect]
     Active Substance: CLOZAPINE
     Dosage: UNK,ADDITIONAL INFORMATION:NJEGOVA THERAPY
     Route: 048
     Dates: start: 20210811, end: 20210811
  2. VENLAFAXINE HYDROCHLORIDE [Suspect]
     Active Substance: VENLAFAXINE HYDROCHLORIDE
     Dosage: UNK,ADDITIONAL INFORMATION:NJEGOVA THERAPY??ADR IS ADEQUATELY LABELED: YES
     Route: 048
     Dates: start: 20210811, end: 20210811

REACTIONS (3)
  - Patient uncooperative [Unknown]
  - Loss of consciousness [Recovering/Resolving]
  - Suicide attempt [Unknown]

NARRATIVE: CASE EVENT DATE: 20210811
